FAERS Safety Report 4380212-6 (Version None)
Quarter: 2004Q2

REPORT INFORMATION
  Report Type: 
  Country: None (occurrence: None)
  Receive Date: 20040601
  Receipt Date: 20040322
  Transmission Date: 20050107
  Serious: Yes (Hospitalization)
  Sender: FDA-Public Use
  Company Number: WAES 0403USA02307

PATIENT
  Sex: Male

DRUGS (2)
  1. ZETIA [Suspect]
     Indication: BLOOD CHOLESTEROL INCREASED
     Dosage: PO
     Route: 048
  2. PRINZIDE [Concomitant]

REACTIONS (2)
  - ARTHRALGIA [None]
  - BACK PAIN [None]
